FAERS Safety Report 24924051 (Version 1)
Quarter: 2025Q1

REPORT INFORMATION
  Report Type: Spontaneous
  Country: US (occurrence: US)
  Receive Date: 20250204
  Receipt Date: 20250204
  Transmission Date: 20250408
  Serious: Yes (Death, Hospitalization)
  Sender: PFIZER
  Company Number: US-PFIZER INC-202500022380

PATIENT
  Sex: Male

DRUGS (2)
  1. LORBRENA [Suspect]
     Active Substance: LORLATINIB
     Indication: Non-small cell lung cancer metastatic
  2. ALECTINIB [Suspect]
     Active Substance: ALECTINIB

REACTIONS (5)
  - Thrombosis [Fatal]
  - Cerebrovascular accident [Fatal]
  - Infarction [Fatal]
  - Pulmonary embolism [Fatal]
  - Neoplasm progression [Fatal]
